FAERS Safety Report 7123612-3 (Version None)
Quarter: 2010Q4

REPORT INFORMATION
  Report Type: 
  Country: None (occurrence: None)
  Receive Date: 20101125
  Receipt Date: 20101110
  Transmission Date: 20110411
  Serious: Yes (Other)
  Sender: FDA-Public Use
  Company Number: CH-JNJFOC-20101102721

PATIENT
  Age: 50 Year
  Sex: Male

DRUGS (10)
  1. RISPERIDONE [Suspect]
     Indication: SCHIZOAFFECTIVE DISORDER
     Route: 065
  2. RISPERIDONE [Suspect]
     Route: 065
  3. QUETIAPINE [Suspect]
     Indication: ILL-DEFINED DISORDER
     Route: 065
  4. QUETIAPINE [Suspect]
     Route: 065
  5. QUETIAPINE [Suspect]
     Route: 065
  6. LITHIUM [Suspect]
     Indication: ILL-DEFINED DISORDER
     Route: 065
  7. LITHIUM [Suspect]
     Route: 065
  8. OLANZAPINE [Suspect]
     Indication: ILL-DEFINED DISORDER
     Route: 065
  9. ZUCLOPENTHIXOL [Suspect]
     Indication: ILL-DEFINED DISORDER
     Route: 065
  10. LEVOMEPROMAZINE [Suspect]
     Indication: ILL-DEFINED DISORDER
     Route: 065

REACTIONS (41)
  - ABNORMAL BEHAVIOUR [None]
  - AFFECT LABILITY [None]
  - ANTIPSYCHOTIC DRUG LEVEL BELOW THERAPEUTIC [None]
  - ANXIETY [None]
  - BLOOD CREATINE PHOSPHOKINASE INCREASED [None]
  - CATATONIA [None]
  - CHILLS [None]
  - CONDITION AGGRAVATED [None]
  - DECREASED ACTIVITY [None]
  - DELIRIUM [None]
  - DELUSION [None]
  - DISTURBANCE IN ATTENTION [None]
  - ELECTROENCEPHALOGRAM ABNORMAL [None]
  - EUPHORIC MOOD [None]
  - EXTRAPYRAMIDAL DISORDER [None]
  - FEAR OF DEATH [None]
  - FLIGHT OF IDEAS [None]
  - HALLUCINATION, AUDITORY [None]
  - HYPERHIDROSIS [None]
  - HYPERREFLEXIA [None]
  - HYPERTENSION [None]
  - HYPOMANIA [None]
  - ILLUSION [None]
  - LOBAR PNEUMONIA [None]
  - MANIA [None]
  - MOTOR DYSFUNCTION [None]
  - MOVEMENT DISORDER [None]
  - MUSCLE RIGIDITY [None]
  - NEUROLEPTIC MALIGNANT SYNDROME [None]
  - PSYCHOMOTOR RETARDATION [None]
  - PSYCHOTIC DISORDER [None]
  - PYREXIA [None]
  - SCHIZOPHRENIA [None]
  - SPEECH DISORDER [None]
  - STEREOTYPY [None]
  - TACHYCARDIA [None]
  - TACHYPHRENIA [None]
  - THERAPEUTIC RESPONSE DECREASED [None]
  - TREMOR [None]
  - URINARY INCONTINENCE [None]
  - WAXY FLEXIBILITY [None]
